FAERS Safety Report 14771877 (Version 3)
Quarter: 2018Q2

REPORT INFORMATION
  Report Type: Spontaneous
  Country: US (occurrence: US)
  Receive Date: 20180417
  Receipt Date: 20180518
  Transmission Date: 20180711
  Serious: Yes (Death)
  Sender: FDA-Public Use
  Company Number: US-ACTELION-A-NJ2018-170643

PATIENT
  Age: 8 Month
  Sex: Female

DRUGS (10)
  1. MILRINONE [Concomitant]
     Active Substance: MILRINONE
     Dosage: 0.45 ?G/KG, PER MIN
     Dates: start: 20180307
  2. VERSED [Concomitant]
     Active Substance: MIDAZOLAM HYDROCHLORIDE
     Dosage: 0.28 MG/KG, UNK
     Dates: start: 20180430
  3. CLONIDINE. [Concomitant]
     Active Substance: CLONIDINE
     Dosage: 0.03 MG, UNK
     Dates: start: 20180430
  4. MORPHINE [Concomitant]
     Active Substance: MORPHINE
     Dosage: 0.2 MG/KG, UNK
     Dates: start: 20180430
  5. HYDROCORTISONE. [Concomitant]
     Active Substance: HYDROCORTISONE
     Dosage: 7.6 MG, QID
     Dates: start: 20180307
  6. TRACLEER [Suspect]
     Active Substance: BOSENTAN
     Indication: PULMONARY HYPERTENSION
     Dosage: 7.5 MG, BID
     Route: 048
     Dates: start: 20180322
  7. PRECEDEX [Concomitant]
     Active Substance: DEXMEDETOMIDINE HYDROCHLORIDE
     Dosage: 1.3 UNK, UNK
     Dates: start: 20180430
  8. VECURONIUM [Concomitant]
     Active Substance: VECURONIUM BROMIDE
     Dosage: 0.5 MG/KG, UNK
     Dates: start: 20180430
  9. PHENOBARBITAL. [Concomitant]
     Active Substance: PHENOBARBITAL
     Dosage: 40 MG, BID
  10. SILDENAFIL. [Concomitant]
     Active Substance: SILDENAFIL
     Dosage: 7.5 MG, UNK
     Dates: start: 20180310

REACTIONS (4)
  - Off label use [Unknown]
  - No adverse event [Unknown]
  - Cardiac arrest [Fatal]
  - Respiratory failure [Fatal]

NARRATIVE: CASE EVENT DATE: 20180509
